FAERS Safety Report 8329866-X (Version None)
Quarter: 2012Q2

REPORT INFORMATION
  Report Type: 
  Country: None (occurrence: None)
  Receive Date: 20120502
  Receipt Date: 20120428
  Transmission Date: 20120825
  Serious: Yes (Life-Threatening, Hospitalization)
  Sender: FDA-Public Use
  Company Number: FR-ROCHE-1055843

PATIENT
  Sex: Male
  Weight: 84 kg

DRUGS (8)
  1. BISOPROLOL FUMARATE [Concomitant]
     Dates: start: 20110623
  2. TEMOZOLOMIDE [Suspect]
     Indication: BRAIN NEOPLASM MALIGNANT
     Dosage: LAST DOSE PRIOR TO SAE: 11/DEC/2010
     Route: 048
     Dates: start: 20100420
  3. AVASTIN [Suspect]
     Indication: BRAIN NEOPLASM MALIGNANT
     Dosage: LAST DOSE PRIOR TO SAE 07 NOV 2011
     Route: 042
     Dates: start: 20100420, end: 20111129
  4. LAMOTRIGINE [Concomitant]
     Dates: start: 20110928
  5. OLMESARTAN MEDOXOMIL [Concomitant]
     Dates: start: 20111101
  6. CLOBAZAM [Concomitant]
     Dates: start: 20110926
  7. CITALOPRAM [Concomitant]
     Dates: start: 20110803
  8. LEVETIRACETAM [Concomitant]
     Dates: start: 20110928

REACTIONS (1)
  - LEUKOENCEPHALOPATHY [None]
